FAERS Safety Report 24772674 (Version 2)
Quarter: 2025Q1

REPORT INFORMATION
  Report Type: Spontaneous
  Country: US (occurrence: US)
  Receive Date: 20241225
  Receipt Date: 20250127
  Transmission Date: 20250409
  Serious: No
  Sender: ABBVIE
  Company Number: US-ABBVIE-6060698

PATIENT
  Sex: Female

DRUGS (1)
  1. VIBERZI [Suspect]
     Active Substance: ELUXADOLINE
     Indication: Inflammatory bowel disease
     Dosage: 100MG TAB?AT NIGHT WITH FOOD
     Route: 048
     Dates: start: 2023

REACTIONS (5)
  - Wrong technique in product usage process [Recovered/Resolved]
  - Off label use [Recovered/Resolved]
  - Sleep disorder [Recovering/Resolving]
  - Fatigue [Recovered/Resolved]
  - Pain [Unknown]

NARRATIVE: CASE EVENT DATE: 20230101
